FAERS Safety Report 24293578 (Version 1)
Quarter: 2024Q3

REPORT INFORMATION
  Report Type: Spontaneous
  Country: US (occurrence: None)
  Receive Date: 20240906
  Receipt Date: 20240906
  Transmission Date: 20241016
  Serious: No
  Sender: DOMPE FARMACEUTICI
  Company Number: US-FARMAPROD-202308-202402-0366

PATIENT
  Sex: Female

DRUGS (19)
  1. OXERVATE [Suspect]
     Active Substance: CENEGERMIN-BKBJ
     Indication: Neurotrophic keratopathy
     Route: 047
     Dates: start: 20220411, end: 20220606
  2. OXERVATE [Suspect]
     Active Substance: CENEGERMIN-BKBJ
     Route: 047
     Dates: start: 20240110
  3. ARTIFICIAL TEARS [Concomitant]
  4. MAGNESIUM [Concomitant]
     Active Substance: MAGNESIUM
  5. VITAMIN D3 [Concomitant]
     Active Substance: CHOLECALCIFEROL
  6. GEMTESA [Concomitant]
     Active Substance: VIBEGRON
  7. MINERALS\VITAMINS [Concomitant]
     Active Substance: MINERALS\VITAMINS
  8. CICATRAL + D MAXIMUM [Concomitant]
  9. FISH OIL-VIT D3 [Concomitant]
     Dosage: 300- 1000 MG
  10. ELIQUIS [Concomitant]
     Active Substance: APIXABAN
  11. GABAPENTIN [Concomitant]
     Active Substance: GABAPENTIN
  12. LEVOTHYROXINE [Concomitant]
     Active Substance: LEVOTHYROXINE\LEVOTHYROXINE SODIUM
  13. DILTIAZEM [Concomitant]
     Active Substance: DILTIAZEM
     Dosage: EXTENDED RELEASE FOR 24 HOURS
  14. OMEPRAZOLE\SODIUM BICARBONATE [Concomitant]
     Active Substance: OMEPRAZOLE\SODIUM BICARBONATE
  15. METOPROLOL-HYDROCHLOROTHIAZIDE [Concomitant]
  16. ALLEGRA-D 24 HOUR [Concomitant]
     Active Substance: FEXOFENADINE HYDROCHLORIDE\PSEUDOEPHEDRINE HYDROCHLORIDE
  17. CHLORTHALIDONE [Concomitant]
     Active Substance: CHLORTHALIDONE
  18. SIMVASTATIN [Concomitant]
     Active Substance: SIMVASTATIN
  19. HYDROCHLOROTHIAZIDE\LOSARTAN [Concomitant]
     Active Substance: HYDROCHLOROTHIAZIDE\LOSARTAN

REACTIONS (1)
  - Eyelid pain [Unknown]
